FAERS Safety Report 14353919 (Version 1)
Quarter: 2018Q1

REPORT INFORMATION
  Report Type: Spontaneous
  Country: US (occurrence: US)
  Receive Date: 20180105
  Receipt Date: 20180105
  Transmission Date: 20180509
  Serious: No
  Sender: FDA-Public Use
  Company Number: US-BRISTOL-MYERS SQUIBB COMPANY-BMS-2017-119268

PATIENT
  Age: 76 Year
  Sex: Male
  Weight: 92.9 kg

DRUGS (1)
  1. ELIQUIS [Suspect]
     Active Substance: APIXABAN
     Indication: ARTERIAL OCCLUSIVE DISEASE
     Dosage: 5 MG, UNK
     Route: 065
     Dates: start: 20171213, end: 20171217

REACTIONS (3)
  - Screaming [Unknown]
  - Arthralgia [Unknown]
  - Product use in unapproved indication [Unknown]

NARRATIVE: CASE EVENT DATE: 20171217
